FAERS Safety Report 24677067 (Version 1)
Quarter: 2024Q4

REPORT INFORMATION
  Report Type: Spontaneous
  Country: US (occurrence: US)
  Receive Date: 20241129
  Receipt Date: 20241129
  Transmission Date: 20250115
  Serious: No
  Sender: CIPLA
  Company Number: US-CIPLA LTD.-2024US03217

PATIENT

DRUGS (14)
  1. GABAPENTIN [Suspect]
     Active Substance: GABAPENTIN
     Indication: Neuropathy peripheral
     Dosage: TWICE A DAY (1 CAPSULE IN THE MORNING AND 2 CAPSULES AT NIGHT), BID
     Route: 065
  2. GABAPENTIN [Suspect]
     Active Substance: GABAPENTIN
     Indication: Diabetes mellitus
  3. METOPROLOL [Concomitant]
     Active Substance: METOPROLOL
     Indication: Product used for unknown indication
     Dosage: 50 MILLIGRAM, QD (ONCE A DAY), PROBABLY BEFORE 2020 OR 2021(PROBABLY 3 OR 4 YEARS AGO)
     Route: 065
  4. ANASTROZOLE [Concomitant]
     Active Substance: ANASTROZOLE
     Indication: Breast cancer
     Dosage: 1 MILLIGRAM, QD (ONCE A DAY)
     Route: 065
     Dates: start: 201701
  5. JANUMET [Concomitant]
     Active Substance: METFORMIN HYDROCHLORIDE\SITAGLIPTIN PHOSPHATE
     Indication: Product used for unknown indication
     Dosage: BID (50/1000 MG/TWICE A DAY), (FEW YEARS AGO)
     Route: 065
  6. JARDIANCE [Concomitant]
     Active Substance: EMPAGLIFLOZIN
     Indication: Product used for unknown indication
     Dosage: 25 MILLIGRAM, QD (ONCE A DAY) (FEW YEARS AGO)
     Route: 065
  7. GLIMEPIRIDE [Concomitant]
     Active Substance: GLIMEPIRIDE
     Indication: Product used for unknown indication
     Dosage: 3 MILLIGRAM, QD (ONCE A DAY) (FEW YEARS AGO)
     Route: 065
  8. FENOFIBRATE [Concomitant]
     Active Substance: FENOFIBRATE
     Indication: Product used for unknown indication
     Dosage: 145 MILLIGRAM, QD (ONCE A DAY) (FOR MANY YEARS)
     Route: 065
  9. LEVOTHYROXINE [Concomitant]
     Active Substance: LEVOTHYROXINE
     Indication: Product used for unknown indication
     Dosage: 100 MILLIGRAM, QD (ONCE A DAY BUT 2 PILLS ON SUNDAY) (PROBABLY BEFORE 1984 OR 1994 (PROBABLY 30 OR 4
     Route: 065
  10. LEVOTHYROXINE [Concomitant]
     Active Substance: LEVOTHYROXINE
     Dosage: 2 PILLS ON SUNDAY (PROBABLY BEFORE 1984 OR 1994 (PROBABLY 30 OR 40 YEARS AGO)
     Route: 065
  11. ASPIRIN [Concomitant]
     Active Substance: ASPIRIN
     Indication: Methylenetetrahydrofolate reductase gene mutation
     Dosage: 81 MILLIGRAM, QD (FOR MANY YEARS)
     Route: 065
  12. METFORMIN [Concomitant]
     Active Substance: METFORMIN HYDROCHLORIDE
     Indication: Product used for unknown indication
     Dosage: UNK
     Route: 065
  13. JANUVIA [Concomitant]
     Active Substance: SITAGLIPTIN PHOSPHATE
     Indication: Product used for unknown indication
     Dosage: UNK
     Route: 065
  14. NEXIUM I.V. [Concomitant]
     Active Substance: ESOMEPRAZOLE SODIUM
     Indication: Flatulence
     Dosage: 40 MILLIGRAM, QD (ONCE A DAY) (FEW YEARS AGO)
     Route: 065

REACTIONS (7)
  - Off label use [Unknown]
  - Intentional product use issue [Unknown]
  - Product odour abnormal [Not Recovered/Not Resolved]
  - Product taste abnormal [Not Recovered/Not Resolved]
  - Product quality issue [Unknown]
  - Product packaging quantity issue [Unknown]
  - Flatulence [Not Recovered/Not Resolved]

NARRATIVE: CASE EVENT DATE: 20240101
